FAERS Safety Report 7734233-3 (Version None)
Quarter: 2011Q3

REPORT INFORMATION
  Report Type: 
  Country: None (occurrence: None)
  Receive Date: 20110901
  Receipt Date: 20110817
  Transmission Date: 20111222
  Serious: Yes (Hospitalization, Other)
  Sender: FDA-Public Use
  Company Number: 2011MA012080

PATIENT
  Age: 52 Year
  Sex: Female

DRUGS (27)
  1. NPH INSULIN [Concomitant]
  2. TYLENOL W/ CODEINE NO. 3 [Concomitant]
  3. VICODIN [Concomitant]
  4. CARVEDILOL [Concomitant]
  5. LISINOPRIL [Concomitant]
  6. DISKUS [Concomitant]
  7. TEGRETOL [Concomitant]
  8. VICODIN [Concomitant]
  9. CEPHALEXIN [Concomitant]
  10. TRAVATAN [Concomitant]
  11. NOVOLIN 70/30 [Concomitant]
  12. FLEXERIL [Concomitant]
  13. CLONAZEPAM [Concomitant]
  14. SEROQUEL [Concomitant]
  15. CRESTOR [Concomitant]
  16. FUROSEMIDE [Concomitant]
  17. DICYCLOMINE [Concomitant]
  18. SINEMET [Concomitant]
  19. MEDROL [Concomitant]
  20. ALBUTEROL [Concomitant]
  21. PHENYTOIN [Concomitant]
  22. PAXIL [Concomitant]
  23. ADVAIR DISKUS 100/50 [Concomitant]
  24. METOCLOPRAMIDE [Suspect]
     Dosage: 10 MG; QID; PO
     Route: 048
     Dates: start: 20050216, end: 20090909
  25. NOVOLOG [Concomitant]
  26. FLUOXETINE [Concomitant]
  27. ROBITUSSIN AC [Concomitant]

REACTIONS (29)
  - INCORRECT DOSE ADMINISTERED [None]
  - LOSS OF CONSCIOUSNESS [None]
  - TARDIVE DYSKINESIA [None]
  - CONDITION AGGRAVATED [None]
  - ANXIETY [None]
  - MEMORY IMPAIRMENT [None]
  - REFLEXES ABNORMAL [None]
  - VIITH NERVE PARALYSIS [None]
  - FALL [None]
  - TREATMENT NONCOMPLIANCE [None]
  - PAIN [None]
  - MOBILITY DECREASED [None]
  - CEREBRAL ATROPHY [None]
  - HYDROCEPHALUS [None]
  - REFLEX TEST ABNORMAL [None]
  - BACK PAIN [None]
  - DIZZINESS [None]
  - APRAXIA [None]
  - ACTIVITIES OF DAILY LIVING IMPAIRED [None]
  - DRUG INEFFECTIVE [None]
  - DEPRESSION [None]
  - DROOLING [None]
  - COGNITIVE DISORDER [None]
  - BLOOD PRESSURE INCREASED [None]
  - HEMIPARESIS [None]
  - CEREBRAL INFARCTION [None]
  - STRABISMUS [None]
  - DYSPHAGIA [None]
  - MUSCLE SPASMS [None]
